FAERS Safety Report 13159529 (Version 1)
Quarter: 2017Q1

REPORT INFORMATION
  Report Type: Spontaneous
  Country: US (occurrence: US)
  Receive Date: 20170127
  Receipt Date: 20170127
  Transmission Date: 20170428
  Serious: Yes (Other)
  Sender: FDA-Public Use
  Company Number: US-JNJFOC-20170118952

PATIENT

DRUGS (3)
  1. REOPRO [Suspect]
     Active Substance: ABCIXIMAB
     Indication: EMBOLISM
     Route: 013
  2. REOPRO [Suspect]
     Active Substance: ABCIXIMAB
     Indication: EMBOLISM
     Route: 042
  3. REOPRO [Suspect]
     Active Substance: ABCIXIMAB
     Indication: EMBOLISM
     Route: 013

REACTIONS (4)
  - Incorrect route of drug administration [Unknown]
  - Off label use [Unknown]
  - Product use issue [Unknown]
  - Infarction [Unknown]
